FAERS Safety Report 4417779-5 (Version None)
Quarter: 2004Q2

REPORT INFORMATION
  Report Type: 
  Country: None (occurrence: None)
  Receive Date: 20040621
  Receipt Date: 20040403
  Transmission Date: 20050107
  Serious: No
  Sender: FDA-Public Use
  Company Number: PHEH2004US04041

PATIENT
  Sex: 0

DRUGS (1)
  1. ZOMETA [Suspect]

REACTIONS (1)
  - BLOOD GLUCOSE INCREASED [None]
